FAERS Safety Report 11881717 (Version 2)
Quarter: 2016Q1

REPORT INFORMATION
  Report Type: Spontaneous
  Country: US (occurrence: US)
  Receive Date: 20151231
  Receipt Date: 20160120
  Transmission Date: 20160526
  Serious: No
  Sender: FDA-Public Use
  Company Number: US-PFIZER INC-2015430750

PATIENT
  Age: 74 Year
  Sex: Male

DRUGS (1)
  1. DEPO-TESTOSTERONE [Suspect]
     Active Substance: TESTOSTERONE CYPIONATE
     Indication: BLOOD TESTOSTERONE DECREASED
     Dosage: 200MG, EVERY 3 WEEKS
     Route: 030
     Dates: start: 20091013

REACTIONS (3)
  - Poor quality drug administered [Unknown]
  - Arthropathy [Not Recovered/Not Resolved]
  - Product quality issue [Unknown]
